FAERS Safety Report 10384465 (Version 1)
Quarter: 2014Q1

REPORT INFORMATION
  Report Type: Spontaneous
  Country: US (occurrence: None)
  Receive Date: 20140306
  Receipt Date: 20140306
  Transmission Date: 20141002
  Serious: Yes (Other)
  Sender: FDA-Public Use
  Company Number: 163-21880-13081493

PATIENT
  Age: 82 Year
  Sex: Female
  Weight: 73.94 kg

DRUGS (1)
  1. REVLIMIB (LENALIDOMIDE) (25 MILLIGRAM, CAPSULES) [Suspect]
     Indication: PLASMA CELL MYELOMA
     Dosage: 25MG, 21 IN 28 D, PO
     Route: 048
     Dates: start: 20130710

REACTIONS (4)
  - Urinary tract disorder [None]
  - Headache [None]
  - Tremor [None]
  - Blood pressure increased [None]
